FAERS Safety Report 8046181-2 (Version None)
Quarter: 2012Q1

REPORT INFORMATION
  Report Type: 
  Country: None (occurrence: None)
  Receive Date: 20120113
  Receipt Date: 20120110
  Transmission Date: 20120608
  Serious: Yes (Death, Hospitalization)
  Sender: FDA-Public Use
  Company Number: US-SANOFI-AVENTIS-2011SA078684

PATIENT
  Age: 77 Year
  Sex: Male
  Weight: 102 kg

DRUGS (22)
  1. DOCETAXEL [Suspect]
     Route: 041
     Dates: start: 20111107, end: 20111107
  2. INVESTIGATIONAL DRUG [Suspect]
     Route: 048
     Dates: start: 20111107, end: 20111109
  3. PYRIDOXINE HCL [Concomitant]
     Dosage: 50-100 MG DAILY
     Dates: start: 20111110
  4. SENNOSIDE A+B CALCIUM [Concomitant]
     Indication: CONSTIPATION
     Dates: start: 20090101
  5. VITAMIN TAB [Concomitant]
     Dosage: DOSE:1 UNIT(S)
     Dates: start: 20090101
  6. GLYCERYL TRINITRATE [Concomitant]
     Indication: ANGINA PECTORIS
     Dates: start: 20100901
  7. METOPROLOL SUCCINATE [Concomitant]
     Indication: HYPERTENSION
     Dates: start: 20100901
  8. DEXAMETHASONE ACETATE [Concomitant]
     Indication: PREMEDICATION
     Dates: start: 20111107
  9. ALLOPURINOL [Concomitant]
     Indication: GOUT
     Dates: start: 19760101
  10. FISH OIL [Concomitant]
     Dates: start: 20090101
  11. MORPHINE SULFATE [Concomitant]
     Indication: BACK PAIN
     Dates: start: 20100601
  12. MORPHINE SULFATE [Concomitant]
     Dosage: 20 MG/ 5 ML AS NEEDED
     Dates: start: 20111108
  13. MORPHINE SULFATE [Concomitant]
     Dosage: AS NEEDED
     Dates: start: 20110822
  14. GRANISETRON HCL [Concomitant]
     Indication: PREMEDICATION
     Dates: start: 20111107
  15. PHENYLPROPANOLAMINE HYDROCHLORIDE AND PARACETAMOL AND DIPHENHYDRAMINE [Concomitant]
     Indication: PREMEDICATION
     Dates: start: 20111107
  16. TEMAZEPAM [Concomitant]
     Indication: INSOMNIA
     Dates: start: 20100401
  17. ZOLEDRONIC ACID [Concomitant]
     Dosage: 4 MG, 1 IN 4 WEEKS
     Dates: start: 20111107
  18. ISOSORBIDE DINITRATE [Concomitant]
     Indication: ANGINA PECTORIS
     Dates: start: 20100901
  19. RANITIDINE HCL [Concomitant]
     Indication: PREMEDICATION
     Dates: start: 20111107
  20. LANSOPRAZOLE [Concomitant]
     Dates: start: 20110408
  21. PYRIDOXINE HCL [Concomitant]
     Dosage: 50-100 MG DAILY
     Dates: start: 20111110
  22. CELECOXIB [Concomitant]
     Indication: DEPRESSION
     Dates: start: 19910101

REACTIONS (2)
  - DEMYELINATION [None]
  - PERIPHERAL SENSORY NEUROPATHY [None]
